FAERS Safety Report 10422458 (Version 2)
Quarter: 2014Q3

REPORT INFORMATION
  Report Type: Report from Study
  Country: JP (occurrence: JP)
  Receive Date: 20140901
  Receipt Date: 20140921
  Transmission Date: 20150326
  Serious: Yes (Hospitalization)
  Sender: FDA-Public Use
  Company Number: PHHO2014JP011469

PATIENT
  Age: 55 Year
  Sex: Female
  Weight: 47 kg

DRUGS (28)
  1. AFINITOR [Suspect]
     Active Substance: EVEROLIMUS
     Dosage: 10 MG, QD
     Route: 048
     Dates: start: 20111024, end: 20111113
  2. BERIZYM                            /01945301/ [Concomitant]
     Indication: PANCREATIC INSUFFICIENCY
     Dosage: 3 G, UNK
     Route: 048
  3. AFINITOR [Suspect]
     Active Substance: EVEROLIMUS
     Indication: PANCREATIC NEUROENDOCRINE TUMOUR
     Dosage: 10 MG, QD
     Route: 048
     Dates: start: 20110927
  4. EQUA [Concomitant]
     Active Substance: VILDAGLIPTIN
     Indication: DIABETES MELLITUS
     Dosage: UNK
     Route: 048
     Dates: start: 20111018, end: 20111020
  5. PRIMPERAN [Concomitant]
     Active Substance: METOCLOPRAMIDE HYDROCHLORIDE
     Indication: GASTRITIS
     Dosage: UNK
     Route: 048
     Dates: start: 20110902, end: 20110902
  6. LANTUS [Concomitant]
     Active Substance: INSULIN GLARGINE
     Indication: DIABETES MELLITUS
     Dosage: UNK
     Route: 058
     Dates: start: 20110930
  7. AFINITOR [Suspect]
     Active Substance: EVEROLIMUS
     Dosage: 5 MG, QD
     Route: 048
     Dates: start: 20120228, end: 20140812
  8. LOXONIN [Concomitant]
     Active Substance: LOXOPROFEN SODIUM
     Indication: NASOPHARYNGITIS
     Dosage: UNK
     Route: 048
     Dates: start: 20110908, end: 20110908
  9. AZUNOL                             /00517002/ [Concomitant]
     Indication: STOMATITIS
     Dosage: UNK
     Route: 048
     Dates: start: 20111005
  10. CRESTOR [Concomitant]
     Active Substance: ROSUVASTATIN CALCIUM
     Indication: HYPERCHOLESTEROLAEMIA
     Dosage: 2.5 MG, UNK
     Route: 048
     Dates: start: 20120924
  11. URSO [Concomitant]
     Active Substance: URSODIOL
     Indication: HEPATIC FUNCTION ABNORMAL
     Dosage: 300 MG, UNK
     Route: 048
     Dates: start: 20110901
  12. GLYCYRON [Concomitant]
     Active Substance: AMMONIUM GLYCYRRHIZATE\GLYCINE\METHIONINE
     Indication: HEPATIC FUNCTION ABNORMAL
     Dosage: UNK
     Route: 048
     Dates: end: 20120116
  13. OMEPRAL [Concomitant]
     Active Substance: OMEPRAZOLE
     Indication: GASTROOESOPHAGEAL REFLUX DISEASE
     Dosage: UNK
     Route: 048
     Dates: end: 20111220
  14. MAGLAX [Concomitant]
     Active Substance: MAGNESIUM OXIDE
     Indication: CONSTIPATION
     Dosage: UNK
     Route: 048
     Dates: start: 20111005
  15. KENALOG [Concomitant]
     Active Substance: TRIAMCINOLONE ACETONIDE
     Indication: STOMATITIS
     Dosage: UNK
     Route: 065
     Dates: start: 20111005
  16. TAKEPRON [Concomitant]
     Active Substance: LANSOPRAZOLE
     Indication: GASTRITIS
     Dosage: 15 MG, UNK
     Route: 048
     Dates: start: 20111221
  17. NORVASC [Concomitant]
     Active Substance: AMLODIPINE BESYLATE
     Indication: HYPERTENSION
     Dosage: 5 MG, UNK
     Route: 048
  18. APIDRA [Concomitant]
     Active Substance: INSULIN GLULISINE
     Indication: DIABETES MELLITUS
     Dosage: UNK
     Route: 058
     Dates: start: 20110830
  19. OTHER COLD PREPARATIONS [Concomitant]
     Indication: NASOPHARYNGITIS
     Dosage: UNK
     Route: 048
     Dates: start: 20110909, end: 20120109
  20. GLUCOSE [Concomitant]
     Active Substance: DEXTROSE
     Indication: HYPOGLYCAEMIA
     Dosage: UNK
     Dates: start: 20111008
  21. SOM230 [Suspect]
     Active Substance: PASIREOTIDE
     Indication: PANCREATIC NEUROENDOCRINE TUMOUR
     Dosage: 60 MG, Q28D
     Route: 030
     Dates: start: 20110927, end: 20140812
  22. PURSENNID//SENNOSIDE A+B CALCIUM [Concomitant]
     Indication: CONSTIPATION
     Dosage: UNK
     Route: 048
     Dates: start: 20110929
  23. ISODINE [Concomitant]
     Active Substance: POVIDONE-IODINE
     Indication: PROPHYLAXIS
     Dosage: UNK
     Dates: start: 20110930
  24. SEVEN E.P [Concomitant]
     Indication: PANCREATIC INSUFFICIENCY
     Dosage: UNK
     Route: 065
     Dates: start: 20110826
  25. HIRUDOID//HEPARINOID [Concomitant]
     Indication: DRY SKIN
     Dosage: UNK
     Route: 061
     Dates: start: 20111007
  26. AFINITOR [Suspect]
     Active Substance: EVEROLIMUS
     Dosage: 10 MG, QD
     Route: 048
     Dates: start: 20111122, end: 20120217
  27. VOGLIBOSE [Concomitant]
     Active Substance: VOGLIBOSE
     Indication: DIABETES MELLITUS
     Dosage: UNK
     Route: 048
     Dates: start: 20111213
  28. EXCELASE [Concomitant]
     Indication: PANCREATIC INSUFFICIENCY
     Dosage: 6 DF, UNK
     Route: 048
     Dates: start: 20121023

REACTIONS (1)
  - Cholangitis [Recovered/Resolved]

NARRATIVE: CASE EVENT DATE: 20140818
